FAERS Safety Report 22254747 (Version 2)
Quarter: 2023Q2

REPORT INFORMATION
  Report Type: Spontaneous
  Country: CA (occurrence: CA)
  Receive Date: 20230426
  Receipt Date: 20230616
  Transmission Date: 20230722
  Serious: Yes (Other)
  Sender: FDA-Public Use
  Company Number: CA-PFIZER INC-202300061983

PATIENT
  Age: 51 Year
  Sex: Female

DRUGS (1)
  1. ABRILADA [Suspect]
     Active Substance: ADALIMUMAB-AFZB
     Indication: Crohn^s disease
     Dosage: 160 MG, WEEK 0, 80 MG WEEK 2, THEN 40 MG EVERY 2 WEEKS STARTING WEEK 4
     Route: 058
     Dates: start: 20221108

REACTIONS (2)
  - Tooth disorder [Unknown]
  - Peripheral swelling [Recovered/Resolved]
